FAERS Safety Report 9338284 (Version 1)
Quarter: 2013Q2

REPORT INFORMATION
  Report Type: Spontaneous
  Country: GB (occurrence: GB)
  Receive Date: 20130610
  Receipt Date: 20130610
  Transmission Date: 20140414
  Serious: Yes (Hospitalization)
  Sender: FDA-Public Use
  Company Number: GB-ROCHE-1232349

PATIENT
  Age: 46 Year
  Sex: Male

DRUGS (1)
  1. ORLISTAT [Suspect]
     Indication: OBESITY
     Route: 048
     Dates: start: 20130228, end: 20130309

REACTIONS (3)
  - Condition aggravated [Unknown]
  - Flank pain [Unknown]
  - Nephrolithiasis [Recovered/Resolved with Sequelae]
